FAERS Safety Report 4853892-6 (Version None)
Quarter: 2005Q4

REPORT INFORMATION
  Report Type: 
  Country: None (occurrence: None)
  Receive Date: 20051213
  Receipt Date: 20051204
  Transmission Date: 20060501
  Serious: Yes (Other)
  Sender: FDA-Public Use
  Company Number: 2005163101

PATIENT
  Age: 66 Year
  Sex: Female
  Weight: 95.2554 kg

DRUGS (1)
  1. BENADRYL [Suspect]
     Indication: PRURITUS
     Dosage: 1 ULTRATAB ONCE, ORAL
     Route: 048
     Dates: start: 20051204, end: 20051204

REACTIONS (1)
  - RASH MORBILLIFORM [None]
